FAERS Safety Report 5614874-X (Version None)
Quarter: 2008Q1

REPORT INFORMATION
  Report Type: 
  Country: None (occurrence: None)
  Receive Date: 20080131
  Receipt Date: 20080122
  Transmission Date: 20080703
  Serious: Yes (Hospitalization, Other)
  Sender: FDA-Public Use
  Company Number: 2008SP000455

PATIENT
  Sex: Male
  Weight: 67 kg

DRUGS (3)
  1. TEMODAL [Suspect]
     Indication: MALIGNANT GLIOMA
     Dosage: 120 MG
     Dates: start: 20070601, end: 20070801
  2. TEMODAL [Suspect]
     Indication: MALIGNANT GLIOMA
     Dosage: 120 MG
     Dates: start: 20070901
  3. HEPARIN [Suspect]
     Indication: THROMBOPHLEBITIS
     Dates: start: 20071001, end: 20071101

REACTIONS (11)
  - ALANINE AMINOTRANSFERASE INCREASED [None]
  - ASTHENIA [None]
  - GLIOMA [None]
  - HEPATIC STEATOSIS [None]
  - HEPATITIS TOXIC [None]
  - HEPATOCELLULAR INJURY [None]
  - HEPATOMEGALY [None]
  - PARAESTHESIA [None]
  - PRURITUS [None]
  - THROMBOPHLEBITIS [None]
  - TRANSAMINASES INCREASED [None]
